FAERS Safety Report 5479004-6 (Version None)
Quarter: 2007Q4

REPORT INFORMATION
  Report Type: 
  Country: None (occurrence: None)
  Receive Date: 20071006
  Receipt Date: 20070925
  Transmission Date: 20080405
  Serious: Yes (Other)
  Sender: FDA-Public Use
  Company Number: JP-PFIZER INC-2007080564

PATIENT
  Sex: Female

DRUGS (3)
  1. ALPRAZOLAM [Suspect]
     Route: 048
  2. COUGH AND COLD PREPARATIONS [Suspect]
     Indication: NASOPHARYNGITIS
     Route: 048
  3. NU LOTAN [Suspect]
     Route: 048

REACTIONS (1)
  - LIVER DISORDER [None]
